FAERS Safety Report 24280317 (Version 5)
Quarter: 2025Q3

REPORT INFORMATION
  Report Type: Spontaneous
  Country: EU (occurrence: EU)
  Receive Date: 20240904
  Receipt Date: 20250731
  Transmission Date: 20251021
  Serious: Yes (Hospitalization, Disabling, Other)
  Sender: Unknown Manufacturer
  Company Number: EU-Rhythm Pharmaceuticals, Inc.-2024RHM000318

PATIENT

DRUGS (15)
  1. IMCIVREE [Suspect]
     Active Substance: SETMELANOTIDE
     Indication: Obesity
     Dosage: 0.5 MG PER DAY FOR THE FIRST WEEK AND THEN, 1 MG PER DAY, .5 MILLIGRAM, QD
     Route: 058
     Dates: start: 20240405
  2. IMCIVREE [Suspect]
     Active Substance: SETMELANOTIDE
     Dosage: 0.5 MG PER DAY FOR THE FIRST WEEK AND THEN, 1 MG PER DAY, 1 MILLIGRAM, QD
     Route: 065
  3. IMCIVREE [Suspect]
     Active Substance: SETMELANOTIDE
     Dosage: 3 MILLIGRAM, QD
     Route: 065
     Dates: end: 20240703
  4. IMCIVREE [Suspect]
     Active Substance: SETMELANOTIDE
     Dosage: .5 MILLIGRAM, QD
     Route: 065
     Dates: start: 20240713
  5. IMCIVREE [Suspect]
     Active Substance: SETMELANOTIDE
     Dosage: 1 MILLIGRAM, QD
     Route: 065
     Dates: start: 20240719
  6. IMCIVREE [Suspect]
     Active Substance: SETMELANOTIDE
     Route: 065
     Dates: start: 202408
  7. IMCIVREE [Suspect]
     Active Substance: SETMELANOTIDE
     Route: 065
     Dates: start: 202409
  8. MINIRIN [Concomitant]
     Active Substance: DESMOPRESSIN ACETATE
     Indication: Diabetes insipidus
     Dosage: 30 MICROGRAM, QD
     Route: 065
     Dates: start: 202403
  9. MINIRIN [Concomitant]
     Active Substance: DESMOPRESSIN ACETATE
     Dosage: 60 MICROGRAM, QD
     Route: 065
     Dates: start: 202403
  10. LEVOTHYROXINE [Concomitant]
     Active Substance: LEVOTHYROXINE
     Indication: Hypothyroidism
     Dosage: 88 MICROGRAM, QD
     Route: 065
     Dates: start: 202310
  11. AVASTIN [Concomitant]
     Active Substance: BEVACIZUMAB
     Indication: Product used for unknown indication
     Route: 065
  12. HYDROCORTISONE [Concomitant]
     Active Substance: HYDROCORTISONE
     Indication: Hypopituitarism
     Dosage: 10 MILLIGRAM, QD
     Route: 065
     Dates: start: 202310
  13. HYDROCORTISONE [Concomitant]
     Active Substance: HYDROCORTISONE
     Dosage: .75 MILLIGRAM, QD
     Route: 065
     Dates: start: 202310
  14. RISPERDAL [Concomitant]
     Active Substance: RISPERIDONE
     Indication: Product used for unknown indication
     Dosage: 2 MILLIGRAM, QD
     Route: 065
     Dates: start: 202403
  15. PROZAC [Concomitant]
     Active Substance: FLUOXETINE HYDROCHLORIDE
     Indication: Product used for unknown indication
     Dosage: 20 MILLIGRAM, QD
     Route: 065
     Dates: start: 202405

REACTIONS (9)
  - Disease progression [Unknown]
  - Visual acuity reduced [Unknown]
  - Hemiparesis [Recovering/Resolving]
  - Dysarthria [Unknown]
  - Facial paralysis [Recovering/Resolving]
  - Delayed puberty [Unknown]
  - Off label use [Recovered/Resolved]
  - Therapy interrupted [Recovered/Resolved]
  - Injection site induration [Unknown]

NARRATIVE: CASE EVENT DATE: 20240401
